FAERS Safety Report 5753083-0 (Version None)
Quarter: 2008Q2

REPORT INFORMATION
  Report Type: 
  Country: None (occurrence: None)
  Receive Date: 20080527
  Receipt Date: 20080514
  Transmission Date: 20081010
  Serious: Yes (Death, Other)
  Sender: FDA-Public Use
  Company Number: GXKR2008CA04464

PATIENT
  Age: 31 Year
  Sex: Male

DRUGS (10)
  1. CYCLOSPORINE [Suspect]
     Indication: IMMUNOSUPPRESSION
     Dosage: 150 MG, BID;
  2. MYCOPHENOLATE MOFETIL [Suspect]
     Indication: IMMUNOSUPPRESSION
     Dosage: 720 MG, BID;
  3. PREDNISONE [Suspect]
     Indication: IMMUNOSUPPRESSION
     Dosage: 22.5 MG, DAILY, IN DIVIDED DOSES, 7.5 MG DAILY
  4. TACROLIMUS [Suspect]
     Dosage: 3 MG, IN DIVIDED DOSES;
  5. TELMISARTAN (TELMISARTAN) [Concomitant]
  6. CIPROFLOXACIN [Concomitant]
  7. ANTITHYMOCYTE IMMUNOGLOBULIN (ANTITHYMOCYTE IMMUNOGLOBULIN) [Concomitant]
  8. CORTICOSTEROIDS (NO INGREDIENTS/SUBSTANCES) [Concomitant]
  9. PIPERACILLIN W/TAZOBACTAM (PIPERACILLIN, TAZOBACTAM) [Concomitant]
  10. ITRACONAZOLE (ITRAZONAZOLE) [Concomitant]

REACTIONS (25)
  - BRAIN STEM SYNDROME [None]
  - BRONCHOPULMONARY ASPERGILLOSIS [None]
  - CANDIDA PNEUMONIA [None]
  - CEREBRAL FUNGAL INFECTION [None]
  - DECEREBRATION [None]
  - DELUSION [None]
  - DIARRHOEA HAEMORRHAGIC [None]
  - DYSURIA [None]
  - FUNGAL ABSCESS CENTRAL NERVOUS SYSTEM [None]
  - HAEMATURIA [None]
  - HALLUCINATION [None]
  - HYDROCEPHALUS [None]
  - INFARCTION [None]
  - KIDNEY TRANSPLANT REJECTION [None]
  - LOCAL SWELLING [None]
  - NAUSEA [None]
  - PAIN IN EXTREMITY [None]
  - PSEUDOMONAS INFECTION [None]
  - PUPIL FIXED [None]
  - PURULENT DISCHARGE [None]
  - PYREXIA [None]
  - RENAL IMPAIRMENT [None]
  - RESPIRATORY FAILURE [None]
  - TINEA PEDIS [None]
  - VOMITING [None]
